FAERS Safety Report 24791212 (Version 1)
Quarter: 2024Q4

REPORT INFORMATION
  Report Type: Report from Study
  Country: US (occurrence: US)
  Receive Date: 20241230
  Receipt Date: 20241230
  Transmission Date: 20250114
  Serious: Yes (Other)
  Sender: ABBVIE
  Company Number: US-ABBVIE-6060331

PATIENT
  Age: 56 Year
  Sex: Female

DRUGS (6)
  1. SKYRIZI [Suspect]
     Active Substance: RISANKIZUMAB-RZAA
     Indication: Crohn^s disease
     Dosage: FORM STRENGTH:360 MILLIGRAM, WEEK 12
     Route: 058
  2. SKYRIZI [Suspect]
     Active Substance: RISANKIZUMAB-RZAA
     Dosage: FORM STRENGTH:360 MILLIGRAM, WEEK 8
     Route: 058
     Dates: start: 202311, end: 202311
  3. SKYRIZI [Suspect]
     Active Substance: RISANKIZUMAB-RZAA
     Dosage: FORM STRENGTH:180 MILLIGRAM, WEEK 8
     Route: 058
     Dates: start: 20240223
  4. SKYRIZI [Suspect]
     Active Substance: RISANKIZUMAB-RZAA
     Indication: Crohn^s disease
     Dosage: FORM STRENGTH: 600 MILLIGRAM, WEEK 0
     Route: 042
     Dates: start: 20230706, end: 20230706
  5. SKYRIZI [Suspect]
     Active Substance: RISANKIZUMAB-RZAA
     Indication: Crohn^s disease
     Dosage: FORM STRENGTH: 600 MILLIGRAM, WEEK 4
     Route: 042
     Dates: start: 20230803, end: 20230803
  6. SKYRIZI [Suspect]
     Active Substance: RISANKIZUMAB-RZAA
     Indication: Crohn^s disease
     Dosage: FORM STRENGTH: 600 MILLIGRAM, WEEK 8
     Route: 042
     Dates: start: 20230831, end: 20230831

REACTIONS (14)
  - Intestinal resection [Unknown]
  - Gastrointestinal motility disorder [Unknown]
  - Bone pain [Unknown]
  - Retching [Unknown]
  - Abdominal hernia [Unknown]
  - Pancreatic failure [Unknown]
  - Dyspepsia [Unknown]
  - Abdominal distension [Unknown]
  - Gastrointestinal sounds abnormal [Unknown]
  - Faeces soft [Unknown]
  - Gastrointestinal disorder [Unknown]
  - Colitis ulcerative [Unknown]
  - Abnormal faeces [Unknown]
  - Arthralgia [Unknown]

NARRATIVE: CASE EVENT DATE: 20240523
